FAERS Safety Report 19630698 (Version 2)
Quarter: 2021Q3

REPORT INFORMATION
  Report Type: Spontaneous
  Country: US (occurrence: US)
  Receive Date: 20210729
  Receipt Date: 20210901
  Transmission Date: 20211014
  Serious: Yes (Other)
  Sender: FDA-Public Use
  Company Number: US-KYOWAKIRIN-2021BKK012945

PATIENT

DRUGS (4)
  1. CRYSVITA [Suspect]
     Active Substance: BUROSUMAB-TWZA
     Indication: NEOPLASM
  2. CALCIUM + VIT D [Suspect]
     Active Substance: CALCIUM\VITAMIN D
     Indication: HYPOCALCAEMIA
  3. CALCIUM + VIT D [Suspect]
     Active Substance: CALCIUM\VITAMIN D
     Indication: HUNGRY BONE SYNDROME
     Dosage: 600 MG, 2X/DAY
     Route: 065
     Dates: start: 2021
  4. CRYSVITA [Suspect]
     Active Substance: BUROSUMAB-TWZA
     Indication: OSTEOPOROSIS
     Dosage: 80 MG
     Route: 058
     Dates: start: 20210210

REACTIONS (4)
  - Hypocalcaemia [Recovered/Resolved]
  - Hungry bone syndrome [Recovered/Resolved]
  - Product use in unapproved indication [Unknown]
  - Contraindicated product administered [Unknown]

NARRATIVE: CASE EVENT DATE: 2021
